FAERS Safety Report 23357985 (Version 3)
Quarter: 2024Q1

REPORT INFORMATION
  Report Type: Spontaneous
  Country: CN (occurrence: CN)
  Receive Date: 20240102
  Receipt Date: 20240125
  Transmission Date: 20240409
  Serious: Yes (Hospitalization)
  Sender: FDA-Public Use
  Company Number: CN-002147023-NVSC2023CN265272

PATIENT
  Age: 55 Year
  Sex: Male
  Weight: 86.5 kg

DRUGS (1)
  1. EXFORGE [Suspect]
     Active Substance: AMLODIPINE BESYLATE\VALSARTAN
     Indication: Hypertension
     Dosage: 1 DOSAGE FORM, QD (BEFORE BREAKFAST EVERY DAY)
     Route: 048

REACTIONS (5)
  - Labile blood pressure [Recovering/Resolving]
  - Blood pressure abnormal [Recovering/Resolving]
  - Headache [Unknown]
  - Hypertension [Recovering/Resolving]
  - Counterfeit product administered [Unknown]
